FAERS Safety Report 21076641 (Version 1)
Quarter: 2022Q3

REPORT INFORMATION
  Report Type: Spontaneous
  Country: US (occurrence: None)
  Receive Date: 20220713
  Receipt Date: 20220713
  Transmission Date: 20221026
  Serious: No
  Sender: FDA-Public Use
  Company Number: None

PATIENT
  Sex: Female

DRUGS (1)
  1. ENBREL [Suspect]
     Active Substance: ETANERCEPT
     Indication: Rheumatoid arthritis
     Dosage: 50MG/ML 1 EVERY 7 DAYS INJECTION?
     Route: 030
     Dates: start: 20220111

REACTIONS (3)
  - Arthralgia [None]
  - Joint swelling [None]
  - Rheumatoid arthritis [None]
